FAERS Safety Report 7756366-8 (Version None)
Quarter: 2011Q3

REPORT INFORMATION
  Report Type: 
  Country: None (occurrence: None)
  Receive Date: 20110916
  Receipt Date: 20110907
  Transmission Date: 20111222
  Serious: Yes (Other)
  Sender: FDA-Public Use
  Company Number: IT-CELGENEUS-083-C5013-11070031

PATIENT
  Sex: Male
  Weight: 88.6 kg

DRUGS (6)
  1. ALLOPURINOL [Concomitant]
     Dosage: 150 MILLIGRAM
     Route: 065
     Dates: start: 20110207, end: 20110220
  2. DARBEPOETIN [Concomitant]
     Indication: ANAEMIA
     Route: 065
     Dates: start: 20110228, end: 20110420
  3. LENALIDOMIDE [Suspect]
     Indication: NON-HODGKIN'S LYMPHOMA
     Dosage: 25 MILLIGRAM
     Route: 048
     Dates: start: 20110110, end: 20110221
  4. PIDOLATE MAGNESIUM [Concomitant]
     Dosage: 4.5 MILLIGRAM
     Route: 065
     Dates: start: 20110207, end: 20110306
  5. TRANEXAMIC ACID [Concomitant]
     Indication: THROMBOCYTOPENIA
     Dosage: 3 GRAM
     Route: 065
     Dates: start: 20110314, end: 20110517
  6. LEVOFLOXACIN [Concomitant]
     Indication: COUGH
     Dosage: 500 MILLIGRAM
     Route: 065
     Dates: start: 20110203, end: 20110206

REACTIONS (1)
  - MYELODYSPLASTIC SYNDROME [None]
